FAERS Safety Report 19025340 (Version 1)
Quarter: 2021Q1

REPORT INFORMATION
  Report Type: Spontaneous
  Country: US (occurrence: US)
  Receive Date: 20210316
  Receipt Date: 20210316
  Transmission Date: 20210420
  Serious: Yes (Hospitalization)
  Sender: FDA-Public Use
  Company Number: None

PATIENT
  Age: 91 Year
  Sex: Male
  Weight: 76.66 kg

DRUGS (1)
  1. NAPROXEN (NAPROXEN 250MG TAB) [Suspect]
     Active Substance: NAPROXEN
     Indication: PAIN
     Route: 048
     Dates: start: 20190412, end: 20190422

REACTIONS (5)
  - Dizziness [None]
  - Peptic ulcer [None]
  - Arthralgia [None]
  - Gastric haemorrhage [None]
  - Upper gastrointestinal haemorrhage [None]

NARRATIVE: CASE EVENT DATE: 20190422
